FAERS Safety Report 5104971-X (Version None)
Quarter: 2006Q3

REPORT INFORMATION
  Report Type: 
  Country: None (occurrence: None)
  Receive Date: 20060911
  Receipt Date: 20060831
  Transmission Date: 20061208
  Serious: Yes (Hospitalization)
  Sender: FDA-Public Use
  Company Number: US-2006-022013

PATIENT
  Age: 35 Year
  Sex: Female
  Weight: 80 kg

DRUGS (2)
  1. MIRENA [Suspect]
     Indication: CONTRACEPTION
     Dosage: 20 UG/DAY, CONT, INTRA-UTERINE
     Route: 015
     Dates: start: 20060706, end: 20060717
  2. CYMBALTA [Concomitant]

REACTIONS (4)
  - COMPLICATION OF DEVICE REMOVAL [None]
  - INTESTINAL PERFORATION [None]
  - PAIN [None]
  - UTERINE PERFORATION [None]
